FAERS Safety Report 5106665-3 (Version None)
Quarter: 2006Q3

REPORT INFORMATION
  Report Type: 
  Country: None (occurrence: None)
  Receive Date: 20060913
  Receipt Date: 20060828
  Transmission Date: 20061208
  Serious: Yes (Other)
  Sender: FDA-Public Use
  Company Number: CA200608006905

PATIENT
  Sex: Female

DRUGS (6)
  1. FORTEO [Suspect]
     Indication: OSTEOPOROSIS
     Dosage: 20 UG, DAILY (1/D)
     Dates: start: 20051013, end: 20060826
  2. FORTEO [Concomitant]
  3. RAMIPRIL [Concomitant]
  4. HYDROCHLOROTHIAZIDE [Concomitant]
  5. ATORVASTATIN CALCIUM [Concomitant]
  6. ASPIRIN [Concomitant]

REACTIONS (6)
  - BLOOD AMYLASE INCREASED [None]
  - BLOOD PARATHYROID HORMONE INCREASED [None]
  - DYSKINESIA [None]
  - EYE ROLLING [None]
  - LOSS OF CONSCIOUSNESS [None]
  - TREMOR [None]
